FAERS Safety Report 16601778 (Version 2)
Quarter: 2019Q3

REPORT INFORMATION
  Report Type: Spontaneous
  Country: US (occurrence: US)
  Receive Date: 20190719
  Receipt Date: 20190905
  Transmission Date: 20191004
  Serious: Yes (Other)
  Sender: FDA-Public Use
  Company Number: US-PFIZER INC-2019311375

PATIENT
  Age: 63 Year
  Sex: Male
  Weight: 88.89 kg

DRUGS (1)
  1. XELJANZ XR [Suspect]
     Active Substance: TOFACITINIB CITRATE
     Indication: RHEUMATOID ARTHRITIS
     Dosage: 11 MG, 1X/DAY
     Route: 048
     Dates: start: 20180824, end: 20190813

REACTIONS (3)
  - Cerebrovascular accident [Unknown]
  - Thrombosis [Unknown]
  - Paralysis [Unknown]

NARRATIVE: CASE EVENT DATE: 20190623
